FAERS Safety Report 14663324 (Version 1)
Quarter: 2018Q1

REPORT INFORMATION
  Report Type: Spontaneous
  Country: US (occurrence: US)
  Receive Date: 20180319
  Receipt Date: 20180319
  Transmission Date: 20180509
  Serious: No
  Sender: FDA-Public Use
  Company Number: None

PATIENT
  Age: 62 Year
  Sex: Female

DRUGS (1)
  1. PROLIA [Suspect]
     Active Substance: DENOSUMAB
     Indication: BONE DISORDER
     Dosage: 60MG Q 6 MONTHS SC?
     Route: 058
     Dates: start: 20170328

REACTIONS (2)
  - Bone graft [None]
  - Tooth extraction [None]

NARRATIVE: CASE EVENT DATE: 20171201
